FAERS Safety Report 6346960-3 (Version None)
Quarter: 2009Q3

REPORT INFORMATION
  Report Type: 
  Country: None (occurrence: None)
  Receive Date: 20090909
  Receipt Date: 20090909
  Transmission Date: 20100115
  Serious: Yes (Death, Other)
  Sender: FDA-Public Use
  Company Number: None

PATIENT
  Age: 53 Year
  Sex: Female
  Weight: 130 kg

DRUGS (20)
  1. WARFARIN SODIUM [Suspect]
     Indication: CATHETERISATION CARDIAC
     Dosage: 5 MG AND 2 MG DAILY PO
     Route: 048
     Dates: start: 20090701, end: 20090801
  2. WARFARIN SODIUM [Suspect]
     Indication: STENT PLACEMENT
     Dosage: 5 MG AND 2 MG DAILY PO
     Route: 048
     Dates: start: 20090701, end: 20090801
  3. ASPIRIN AND CLOPIDOGREL [Suspect]
     Indication: CATHETERISATION CARDIAC
     Dosage: 325 MG AND 75 MG BOTH DAILY PO
     Route: 048
     Dates: start: 20090701, end: 20090805
  4. ASPIRIN AND CLOPIDOGREL [Suspect]
     Indication: STENT PLACEMENT
     Dosage: 325 MG AND 75 MG BOTH DAILY PO
     Route: 048
     Dates: start: 20090701, end: 20090805
  5. FAMOTIDINE [Concomitant]
  6. AMLODIPINE [Concomitant]
  7. ALBUTEROL/IPRATROPIUM NEBULIZER [Concomitant]
  8. CLONIDINE [Concomitant]
  9. GABAPENTIN [Concomitant]
  10. TIZANIDINE HCL [Concomitant]
  11. ASPIRIN [Concomitant]
  12. CLOPIDOGREL [Concomitant]
  13. LORAZEPAM [Concomitant]
  14. SENNA [Concomitant]
  15. NITROGLYCERIN [Concomitant]
  16. MORPHINE [Concomitant]
  17. FLUTICASONE/SALMETEROL [Concomitant]
  18. HYDROCORTISONE [Concomitant]
  19. ISOSORBIDE MONONITRATE [Concomitant]
  20. LISINOPRIL [Concomitant]

REACTIONS (15)
  - ANAEMIA [None]
  - BACK PAIN [None]
  - BRAIN DEATH [None]
  - CARDIO-RESPIRATORY ARREST [None]
  - ECCHYMOSIS [None]
  - EPISTAXIS [None]
  - FALL [None]
  - HAEMORRHAGE INTRACRANIAL [None]
  - HYPOTENSION [None]
  - INTERNATIONAL NORMALISED RATIO INCREASED [None]
  - LETHARGY [None]
  - RENAL FAILURE ACUTE [None]
  - RHABDOMYOLYSIS [None]
  - SUBDURAL HAEMATOMA [None]
  - UNRESPONSIVE TO STIMULI [None]
